FAERS Safety Report 6918145-0 (Version None)
Quarter: 2010Q3

REPORT INFORMATION
  Report Type: 
  Country: None (occurrence: None)
  Receive Date: 20100810
  Receipt Date: 20100802
  Transmission Date: 20110219
  Serious: Yes (Death)
  Sender: FDA-Public Use
  Company Number: US-AMGEN-QUU428467

PATIENT
  Sex: Male

DRUGS (3)
  1. NPLATE [Suspect]
     Indication: IDIOPATHIC THROMBOCYTOPENIC PURPURA
     Dates: start: 20100723, end: 20100723
  2. CORTICOSTEROIDS [Concomitant]
     Dates: start: 20100707
  3. DEXAMETHASONE [Concomitant]

REACTIONS (1)
  - OESOPHAGEAL CARCINOMA [None]
